FAERS Safety Report 7451614-6 (Version None)
Quarter: 2011Q2

REPORT INFORMATION
  Report Type: 
  Country: None (occurrence: None)
  Receive Date: 20110502
  Receipt Date: 20100308
  Transmission Date: 20111010
  Serious: No
  Sender: FDA-Public Use
  Company Number: US-ASTRAZENECA-2010SE09961

PATIENT
  Sex: Male
  Weight: 110.2 kg

DRUGS (3)
  1. DICYCLOMINE [Concomitant]
  2. NEXIUM [Suspect]
     Route: 048
  3. ACIPHEX [Concomitant]

REACTIONS (4)
  - MALAISE [None]
  - VOMITING [None]
  - ABDOMINAL PAIN UPPER [None]
  - DRUG DOSE OMISSION [None]
